FAERS Safety Report 24289733 (Version 1)
Quarter: 2024Q3

REPORT INFORMATION
  Report Type: Spontaneous
  Country: GB (occurrence: GB)
  Receive Date: 20240906
  Receipt Date: 20240906
  Transmission Date: 20241017
  Serious: No
  Sender: ALKEM
  Company Number: None

PATIENT
  Age: 29 Year
  Sex: Female
  Weight: 57 kg

DRUGS (9)
  1. PREGABALIN [Suspect]
     Active Substance: PREGABALIN
     Indication: Product used for unknown indication
     Dosage: 50 MILLIGRAM, QD (CAPSULE, TAKE ONE DAILY TO REPLACE GABAPENTIN AS PER PLA)
     Route: 065
     Dates: start: 20230818
  2. AMITRIPTYLINE HYDROCHLORIDE [Concomitant]
     Active Substance: AMITRIPTYLINE HYDROCHLORIDE
     Indication: Product used for unknown indication
     Dosage: 1 DOSAGE FORM, HS (EACH NIGHT TO MAKE TOTAL DOSE 7)
     Route: 065
     Dates: start: 20230425
  3. CLARITHROMYCIN [Concomitant]
     Active Substance: CLARITHROMYCIN
     Indication: Product used for unknown indication
     Dosage: 2 DOSAGE FORM, BID (TAKE ONE TABLET TWICE A DAY FOR 5 DAYS, TO TREA
     Route: 065
     Dates: start: 20230629, end: 20230704
  4. DIAZEPAM [Concomitant]
     Active Substance: DIAZEPAM
     Indication: Anxiety
     Dosage: 1 DOSAGE FORM (TAKE ONE A DAY AS REQUIRED FOR ANXIETY)
     Route: 065
     Dates: start: 20230818, end: 20230901
  5. FEXOFENADINE [Concomitant]
     Active Substance: FEXOFENADINE HYDROCHLORIDE
     Indication: Product used for unknown indication
     Dosage: 1 DOSAGE FORM, BID (START WITH TAKE ONE TABLET TWICE DAILY FOR 1 WE)
     Route: 065
     Dates: start: 20230425
  6. FLUOXETINE [Concomitant]
     Active Substance: FLUOXETINE HYDROCHLORIDE
     Indication: Product used for unknown indication
     Dosage: 60 MILLIGRAM, QD
     Route: 065
     Dates: start: 20230509
  7. GABAPENTIN [Concomitant]
     Active Substance: GABAPENTIN
     Indication: Product used for unknown indication
     Dosage: 1 DOSAGE FORM (TAKE ONE AS DIRECTED AS PART OF REDUCING REGIME)
     Route: 065
     Dates: start: 20230411, end: 20230901
  8. OXYCODONE HYDROCHLORIDE [Concomitant]
     Active Substance: OXYCODONE HYDROCHLORIDE
     Indication: Product used for unknown indication
     Dosage: 1 DOSAGE FORM, BID (12 HOUR)
     Route: 065
     Dates: start: 20230818
  9. Oxypro Prolonged Release [Concomitant]
     Indication: Product used for unknown indication
     Dosage: 1 DOSAGE FORM, BID (EVERY 12 HOUR)
     Route: 065
     Dates: start: 20230804

REACTIONS (1)
  - Peripheral swelling [Recovered/Resolved]

NARRATIVE: CASE EVENT DATE: 20230901
